FAERS Safety Report 22972989 (Version 3)
Quarter: 2024Q1

REPORT INFORMATION
  Report Type: Spontaneous
  Country: BR (occurrence: None)
  Receive Date: 20230922
  Receipt Date: 20240117
  Transmission Date: 20240410
  Serious: Yes (Hospitalization, Other)
  Sender: FDA-Public Use
  Company Number: 2023A214847

PATIENT
  Age: 81 Year
  Sex: Male
  Weight: 65 kg

DRUGS (12)
  1. METOPROLOL SUCCINATE [Suspect]
     Active Substance: METOPROLOL SUCCINATE
     Dosage: HALF AT BREAKFAST AND HALF AT NIGHT
     Route: 048
  2. DAPAGLIFLOZIN [Suspect]
     Active Substance: DAPAGLIFLOZIN
     Indication: Renal disorder
     Dosage: 1 TABLET AT BREAKFAST
     Route: 048
     Dates: start: 20230101
  3. TRESIBA [Concomitant]
     Active Substance: INSULIN DEGLUDEC
     Dosage: EVERY MORNING
  4. ASSERTE [Concomitant]
     Dosage: 1 TABLET AND A HALF PER DAY
  5. ASSERTE [Concomitant]
     Dosage: 1 TABLET AND A HALF PER DAY
  6. TADALAFIL [Concomitant]
     Active Substance: TADALAFIL
     Dosage: A TABLET5.0MG UNKNOWN
  7. ALLOPURINOL [Concomitant]
     Active Substance: ALLOPURINOL
     Dosage: 100.0MG UNKNOWN
  8. ROSUVASTATIN [Concomitant]
     Active Substance: ROSUVASTATIN
     Dosage: 1 TABLET AT DINNER10.0MG UNKNOWN
  9. AMIODARONE HYDROCHLORIDE [Concomitant]
     Active Substance: AMIODARONE HYDROCHLORIDE
     Dosage: DURING THE WEEK200.0MG UNKNOWN
  10. PANTOPRAZOLE [Concomitant]
     Active Substance: PANTOPRAZOLE
     Dosage: 1 TABLET IN THE MORNING AND 1 TABLET AT NIGHT20.0MG UNKNOWN
  11. ASPIRIN\DIHYDROXYALUMINUM AMINOACETATE ANHYDROUS\MAGNESIUM CARBONATE [Concomitant]
     Active Substance: ASPIRIN\DIHYDROXYALUMINUM AMINOACETATE ANHYDROUS\MAGNESIUM CARBONATE
     Dosage: AT LUNCH100.0MG UNKNOWN
  12. INSULIN NOS [Concomitant]
     Active Substance: INSULIN NOS

REACTIONS (13)
  - Heart rate decreased [Unknown]
  - Weight decreased [Not Recovered/Not Resolved]
  - COVID-19 [Not Recovered/Not Resolved]
  - Renal impairment [Unknown]
  - Weight increased [Unknown]
  - Fluid retention [Unknown]
  - Fatigue [Unknown]
  - Product administration error [Unknown]
  - Penile infection [Not Recovered/Not Resolved]
  - Polyuria [Not Recovered/Not Resolved]
  - Pollakiuria [Unknown]
  - Groin infection [Not Recovered/Not Resolved]
  - Diabetes mellitus [Unknown]

NARRATIVE: CASE EVENT DATE: 20230101
